FAERS Safety Report 9385630 (Version 2)
Quarter: 2013Q3

REPORT INFORMATION
  Report Type: Spontaneous
  Country: FR (occurrence: None)
  Receive Date: 20130701
  Receipt Date: 20130718
  Transmission Date: 20140515
  Serious: Yes (Life-Threatening, Hospitalization, Disabling, Other)
  Sender: FDA-Public Use
  Company Number: THQ2013A04673

PATIENT
  Age: 87 Year
  Sex: Male

DRUGS (8)
  1. LANSOPRAZOLE [Suspect]
     Indication: GASTROOESOPHAGEAL REFLUX DISEASE
     Route: 048
  2. ACUILIX [Suspect]
     Indication: HYPERTENSION
     Route: 048
  3. FLUTICASONE PROPIONATE [Concomitant]
  4. SALMETEROL XINAFOATE [Concomitant]
  5. XARELTO [Concomitant]
     Indication: ARRHYTHMIA
     Route: 048
  6. CRESTOR (ROSUVASTATIN CALCIUM) [Concomitant]
     Indication: HYPERCHOLESTEROLAEMIA
     Route: 048
  7. VESICARE (SOLIFENACIN SUCCINATE) [Concomitant]
     Indication: HYPERTONIC BLADDER
     Route: 048
  8. TOCOPHEROL [Concomitant]
     Indication: PRODUCT USED FOR UNKNOWN INDICATION
     Route: 048

REACTIONS (6)
  - Ischaemic stroke [None]
  - Fall [None]
  - Brain natriuretic peptide increased [None]
  - Creatinine renal clearance decreased [None]
  - Prothrombin time ratio decreased [None]
  - Atrial fibrillation [None]
